FAERS Safety Report 5721179-5 (Version None)
Quarter: 2008Q2

REPORT INFORMATION
  Report Type: 
  Country: None (occurrence: None)
  Receive Date: 20080429
  Receipt Date: 20080423
  Transmission Date: 20081010
  Serious: Yes (Hospitalization)
  Sender: FDA-Public Use
  Company Number: B0518342A

PATIENT
  Age: 39 Year
  Sex: Male

DRUGS (2)
  1. AUGMENTIN '125' [Suspect]
     Indication: CYSTITIS
     Dosage: 2G PER DAY
     Route: 048
     Dates: start: 20080328, end: 20080329
  2. MONURIL [Concomitant]
     Indication: CYSTITIS
     Dosage: 3G PER DAY
     Route: 048
     Dates: start: 20080328, end: 20080328

REACTIONS (3)
  - DERMATITIS EXFOLIATIVE [None]
  - FACE OEDEMA [None]
  - PRURITUS [None]
